FAERS Safety Report 17194778 (Version 1)
Quarter: 2019Q4

REPORT INFORMATION
  Report Type: Spontaneous
  Country: US (occurrence: US)
  Receive Date: 20191202
  Receipt Date: 20191202
  Transmission Date: 20200122
  Serious: No
  Sender: FDA-Public Use
  Company Number: None

PATIENT
  Age: 87 Year
  Sex: Male

DRUGS (2)
  1. ZYTIGA [Suspect]
     Active Substance: ABIRATERONE ACETATE
     Route: 048
     Dates: start: 2019
  2. PREDNISONE. [Concomitant]
     Active Substance: PREDNISONE

REACTIONS (7)
  - Back pain [None]
  - Contusion [None]
  - Skin discolouration [None]
  - Amnesia [None]
  - Aphasia [None]
  - Pain [None]
  - Musculoskeletal disorder [None]

NARRATIVE: CASE EVENT DATE: 20191202
